FAERS Safety Report 9699254 (Version 2)
Quarter: 2015Q3

REPORT INFORMATION
  Report Type: Spontaneous
  Country: US (occurrence: US)
  Receive Date: 20131120
  Receipt Date: 20150803
  Transmission Date: 20151125
  Serious: No
  Sender: FDA-Public Use
  Company Number: US-GILEAD-2008-0015225

PATIENT
  Age: 51 Year
  Sex: Male

DRUGS (2)
  1. REVATIO [Concomitant]
     Active Substance: SILDENAFIL CITRATE
  2. LETAIRIS [Suspect]
     Active Substance: AMBRISENTAN

REACTIONS (6)
  - Pyrexia [None]
  - Blood pressure increased [None]
  - Swelling [None]
  - Abdominal pain upper [None]
  - Headache [None]
  - Nasal congestion [None]
